FAERS Safety Report 8367150-9 (Version None)
Quarter: 2012Q1

REPORT INFORMATION
  Report Type: 
  Country: None (occurrence: None)
  Receive Date: 20120323
  Receipt Date: 20111110
  Transmission Date: 20120608
  Serious: Yes (Death, Hospitalization)
  Sender: FDA-Public Use
  Company Number: 163-21880-11072747

PATIENT
  Age: 66 Year
  Sex: Female

DRUGS (18)
  1. ENALAPRIL MALEATE [Concomitant]
  2. ALENDRONATE SODIUM [Concomitant]
  3. OXYCODONE/APAP(OXYCODONE/APAP)(UNKNOWN) [Concomitant]
  4. LISINOPRIL [Concomitant]
  5. PERCOCET(OXYCOCET) (UNKNOWN) [Concomitant]
  6. FLUOXETINE [Concomitant]
  7. FUROSEMIDE [Concomitant]
  8. ANTIBIOTICS (ANTIBIOTICS)(UNKNOWN) [Concomitant]
  9. INSULIN(INSULIN)(UNKNOWN) [Concomitant]
  10. DEXAMETHASONE [Concomitant]
  11. OXYGEN(OXYGEN)(UNKNOWN) [Concomitant]
  12. METOCLOPRAMIDE [Concomitant]
  13. INDAPAMIDE (INDAPAMIDE)(UNKNOWN) [Concomitant]
  14. GABAPENTIN [Concomitant]
  15. REVLIMID [Suspect]
     Indication: MULTIPLE MYELOMA
     Dosage: 25 MG, QD  X 21  DAYS, PO
     Route: 048
     Dates: start: 20110620, end: 20110801
  16. ASPIRIN [Concomitant]
  17. MELOXICAM [Concomitant]
  18. PROZAC [Concomitant]

REACTIONS (1)
  - PNEUMONIA [None]
